FAERS Safety Report 11835421 (Version 1)
Quarter: 2015Q4

REPORT INFORMATION
  Report Type: Spontaneous
  Country: US (occurrence: None)
  Receive Date: 20151214
  Receipt Date: 20151214
  Transmission Date: 20160305
  Serious: No
  Sender: FDA-Public Use
  Company Number: None

PATIENT
  Age: 69 Year
  Sex: Male
  Weight: 90.72 kg

DRUGS (8)
  1. HYDRASHLOROTHIAZIDE [Concomitant]
  2. DELSYM COUGH PLUS COLD DAY TIME [Suspect]
     Active Substance: ACETAMINOPHEN\DEXTROMETHORPHAN HYDROBROMIDE\GUAIFENESIN\PHENYLEPHRINE HYDROCHLORIDE
     Indication: COUGH
     Route: 048
  3. VITAMIN E [Concomitant]
     Active Substance: .ALPHA.-TOCOPHEROL
  4. FISH OIL [Concomitant]
     Active Substance: FISH OIL
  5. LUTIN [Concomitant]
  6. PRAVASTATIN [Concomitant]
     Active Substance: PRAVASTATIN\PRAVASTATIN SODIUM
  7. MULTI VITAMIN [Concomitant]
     Active Substance: VITAMINS
  8. ASPIRIN-LOW DOSAGE [Concomitant]

REACTIONS (1)
  - Product label issue [None]

NARRATIVE: CASE EVENT DATE: 20151213
